FAERS Safety Report 5026900-X (Version None)
Quarter: 2006Q2

REPORT INFORMATION
  Report Type: 
  Country: None (occurrence: None)
  Receive Date: 20060501
  Receipt Date: 20060209
  Transmission Date: 20061013
  Serious: No
  Sender: FDA-Public Use
  Company Number: 200610803BWH

PATIENT
  Age: 75 Year
  Sex: Male
  Weight: 77.1115 kg

DRUGS (12)
  1. NEXAVAR [Suspect]
     Indication: RENAL CELL CARCINOMA STAGE UNSPECIFIED
     Dosage: 400 MG, BID, ORAL
     Route: 048
     Dates: start: 20060208
  2. BETAPACE [Concomitant]
  3. ZETIA [Concomitant]
  4. LEXAPRO [Concomitant]
  5. ARICEPT [Concomitant]
  6. FERGON [Concomitant]
  7. SENOKOT [Concomitant]
  8. COLACE [Concomitant]
  9. ANULOSE [Concomitant]
  10. CENTRUM [Concomitant]
  11. CALCIUM GLUCONATE [Concomitant]
  12. COUMADIN [Concomitant]

REACTIONS (18)
  - ALOPECIA [None]
  - AMNESIA [None]
  - BLOOD PRESSURE INCREASED [None]
  - CONFUSIONAL STATE [None]
  - CONSTIPATION [None]
  - COUGH [None]
  - DEPENDENCE [None]
  - DYSPHONIA [None]
  - ERYTHEMA [None]
  - FATIGUE [None]
  - FEELING HOT [None]
  - GLOSSODYNIA [None]
  - POLLAKIURIA [None]
  - REGRESSIVE BEHAVIOUR [None]
  - SKIN WARM [None]
  - STOMACH DISCOMFORT [None]
  - TONGUE BITING [None]
  - WEIGHT DECREASED [None]
